FAERS Safety Report 13988330 (Version 1)
Quarter: 2017Q3

REPORT INFORMATION
  Report Type: Spontaneous
  Country: BR (occurrence: BR)
  Receive Date: 20170919
  Receipt Date: 20170919
  Transmission Date: 20171128
  Serious: Yes (Other)
  Sender: FDA-Public Use
  Company Number: BR-ALEXION-A201706251

PATIENT
  Age: 38 Year
  Sex: Male

DRUGS (4)
  1. SOLIRIS [Suspect]
     Active Substance: ECULIZUMAB
     Indication: PAROXYSMAL NOCTURNAL HAEMOGLOBINURIA
     Dosage: 600 MG, QW
     Route: 042
     Dates: start: 20161019, end: 20161109
  2. DIPYRONE [Concomitant]
     Active Substance: DIPYRONE
     Indication: PRODUCT USED FOR UNKNOWN INDICATION
     Dosage: UNK
     Route: 065
  3. SOLIRIS [Suspect]
     Active Substance: ECULIZUMAB
     Dosage: 900 MG, Q2W
     Route: 042
     Dates: start: 20161116
  4. BENZETACIL                         /00000904/ [Concomitant]
     Active Substance: PENICILLIN G BENZATHINE
     Indication: PROPHYLAXIS
     Dosage: UNK, Q3W
     Route: 065

REACTIONS (2)
  - Haemoglobinuria [Recovered/Resolved]
  - Abdominal pain [Recovered/Resolved]
